FAERS Safety Report 9674467 (Version 4)
Quarter: 2014Q3

REPORT INFORMATION
  Report Type: Report from Study
  Country: BR (occurrence: BR)
  Receive Date: 20131107
  Receipt Date: 20140820
  Transmission Date: 20150326
  Serious: Yes (Hospitalization)
  Sender: FDA-Public Use
  Company Number: BR-ROCHE-702453

PATIENT
  Sex: Female
  Weight: 92 kg

DRUGS (12)
  1. OMEPRAZOLE. [Concomitant]
     Active Substance: OMEPRAZOLE
  2. SIBUTRAMINE HYDROCHLORIDE [Concomitant]
     Active Substance: SIBUTRAMINE HYDROCHLORIDE
     Route: 065
  3. ACTEMRA [Suspect]
     Active Substance: TOCILIZUMAB
     Indication: RHEUMATOID ARTHRITIS
     Dosage: 41 INFUSIONS IN TOTAL PERFORMED MONTLHY
     Route: 042
     Dates: start: 20100101, end: 201407
  4. OSTEONUTRI [Concomitant]
     Indication: OSTEOPOROSIS
     Route: 065
  5. HYDROCHLOROTHIAZIDE. [Concomitant]
     Active Substance: HYDROCHLOROTHIAZIDE
     Indication: OSTEOPOROSIS
     Route: 065
  6. AD-TIL [Concomitant]
  7. LOSARTAN [Concomitant]
     Active Substance: LOSARTAN
     Indication: HYPERTENSION
     Route: 065
  8. PRELONE [Concomitant]
     Active Substance: PREDNISOLONE
     Route: 065
  9. GABAPENTIN. [Concomitant]
     Active Substance: GABAPENTIN
  10. HYDROCHLOROTHIAZIDE. [Concomitant]
     Active Substance: HYDROCHLOROTHIAZIDE
     Indication: HYPERTENSION
  11. ACETYLCYSTEINE. [Concomitant]
     Active Substance: ACETYLCYSTEINE
  12. PRESSAT [Concomitant]
     Active Substance: AMLODIPINE BESYLATE
     Indication: HYPERTENSION

REACTIONS (10)
  - Arthralgia [Recovering/Resolving]
  - Decreased immune responsiveness [Recovered/Resolved]
  - Limb deformity [Unknown]
  - Respiratory tract infection [Recovering/Resolving]
  - Urinary tract infection [Recovered/Resolved]
  - Dermatitis [Unknown]
  - Ill-defined disorder [Unknown]
  - Drug dose omission [Unknown]
  - Rheumatoid arthritis [Not Recovered/Not Resolved]
  - Gastrointestinal infection [Recovered/Resolved]

NARRATIVE: CASE EVENT DATE: 2010
